FAERS Safety Report 6631175-1 (Version None)
Quarter: 2010Q1

REPORT INFORMATION
  Report Type: 
  Country: None (occurrence: None)
  Receive Date: 20100309
  Receipt Date: 20100226
  Transmission Date: 20100710
  Serious: Yes (Other)
  Sender: FDA-Public Use
  Company Number: 007959

PATIENT
  Age: 18 Year
  Sex: Male

DRUGS (2)
  1. KEPPRA [Suspect]
     Indication: EPILEPSY
     Dosage: (500 MG TID ORAL)
     Route: 048
     Dates: start: 20061201
  2. SODIUM VALPROATE [Concomitant]

REACTIONS (1)
  - ABDOMINAL DISCOMFORT [None]
